FAERS Safety Report 7913460-6 (Version None)
Quarter: 2011Q4

REPORT INFORMATION
  Report Type: 
  Country: None (occurrence: None)
  Receive Date: 20111115
  Receipt Date: 20111104
  Transmission Date: 20120403
  Serious: Yes (Other)
  Sender: FDA-Public Use
  Company Number: AR-AMGEN-ARGSP2011058281

PATIENT
  Age: 53 Year
  Sex: Female

DRUGS (3)
  1. ENBREL [Suspect]
     Indication: RHEUMATOID ARTHRITIS
     Dosage: 25 MG, WEEKLY
     Dates: start: 20050101
  2. ENBREL [Suspect]
     Dosage: 50 MG, WEEKLY
     Dates: end: 20090101
  3. HUMIRA [Concomitant]
     Dosage: UNK

REACTIONS (1)
  - ENDOMETRIAL CANCER [None]
